FAERS Safety Report 7683000-8 (Version None)
Quarter: 2011Q3

REPORT INFORMATION
  Report Type: 
  Country: None (occurrence: None)
  Receive Date: 20110812
  Receipt Date: 20110812
  Transmission Date: 20111222
  Serious: Yes (Other)
  Sender: FDA-Public Use
  Company Number: None

PATIENT
  Sex: Female
  Weight: 67.586 kg

DRUGS (1)
  1. LIALDA [Suspect]
     Indication: COLITIS ULCERATIVE
     Dosage: 4 TABLETS ONCE A DAY
     Dates: start: 20110302, end: 20110320

REACTIONS (2)
  - DIARRHOEA HAEMORRHAGIC [None]
  - PRODUCT SUBSTITUTION ISSUE [None]
